FAERS Safety Report 21439291 (Version 1)
Quarter: 2022Q4

REPORT INFORMATION
  Report Type: Spontaneous
  Country: US (occurrence: None)
  Receive Date: 20221008
  Receipt Date: 20221008
  Transmission Date: 20230113
  Serious: Yes (Hospitalization)
  Sender: FDA-Public Use
  Company Number: None

PATIENT
  Age: 61 Year
  Sex: Male
  Weight: 82.9 kg

DRUGS (2)
  1. CARBOPLATIN [Suspect]
     Active Substance: CARBOPLATIN
     Dates: end: 20220921
  2. TAXOL [Suspect]
     Active Substance: PACLITAXEL
     Dates: end: 20220921

REACTIONS (1)
  - Proctalgia [None]

NARRATIVE: CASE EVENT DATE: 20221003
